FAERS Safety Report 9850231 (Version 1)
Quarter: 2013Q4

REPORT INFORMATION
  Report Type: Spontaneous
  Country: US (occurrence: None)
  Receive Date: 20131226
  Receipt Date: 20131226
  Transmission Date: 20140711
  Serious: Yes (Other)
  Sender: FDA-Public Use
  Company Number: PHEH2013US004988

PATIENT
  Sex: Female

DRUGS (15)
  1. SANDOSTATIN LAR DEPOT (OCTREOTIDE WITH POLY (D L-LACTIDE-CO-GLYCOLIDE)) SUSPENSION [Suspect]
     Dosage: SUSPENSION
  2. NOVOLOB (INSULIN ASPART) [Concomitant]
  3. LEVEMIR (INSULIN DETEMIR) [Concomitant]
  4. KLOR-CON (POTASSIUM CHLORIDE) [Concomitant]
  5. CENTRUM SILVER (ASCORBIC ACID, CALCIUM, MINERALS NOS, RETINOL, TOCOPHERYL ACETATE, VITAMIN B NOS, VITAMINS NOS, ZINC) [Concomitant]
  6. SIMVASTATIN (SIMVASTATIN) [Concomitant]
  7. FUROSEMIDE (FUROSEMIDE) [Concomitant]
  8. VITAMIN E (TOCOPHEROL) [Concomitant]
  9. OYSTER SHELL CALCIUM (CALCIUM CARBONATE) [Concomitant]
  10. FISH OIL (FISH OIL) [Concomitant]
  11. TRAMADOL HCL [Concomitant]
  12. ASPIRIN (ACETYLSALICYLIC ACID) [Concomitant]
  13. MAGNESIUM OXIDE (MAGNESIUM OXIDE) [Concomitant]
  14. SOMAVER (PEGVISOMANT) [Concomitant]
  15. DIOVAN HCT (HYDROCHLOROTHIAZIDE, VALSARTAN [Concomitant]

REACTIONS (5)
  - Diabetes mellitus inadequate control [None]
  - Prognathism [None]
  - Tonsillar hypertrophy [None]
  - Oedema peripheral [None]
  - Nasal oedema [None]
